FAERS Safety Report 13464122 (Version 1)
Quarter: 2017Q2

REPORT INFORMATION
  Report Type: Spontaneous
  Country: US (occurrence: US)
  Receive Date: 20170420
  Receipt Date: 20170420
  Transmission Date: 20170830
  Serious: Yes (Other)
  Sender: FDA-Public Use
  Company Number: US-ROCHE-718676

PATIENT
  Age: 18 Year
  Sex: Female
  Weight: 81.6 kg

DRUGS (2)
  1. ACCUTANE [Suspect]
     Active Substance: ISOTRETINOIN
     Indication: ACNE
     Route: 048
     Dates: start: 19971022, end: 19980916
  2. BIRTH CONTROL PILLS NOS [Concomitant]
     Active Substance: UNSPECIFIED INGREDIENT
     Route: 065

REACTIONS (10)
  - Blood triglycerides increased [Not Recovered/Not Resolved]
  - Crohn^s disease [Not Recovered/Not Resolved]
  - Enteritis [Unknown]
  - Blood cholesterol increased [Unknown]
  - Inflammatory bowel disease [Unknown]
  - Depression [Unknown]
  - Cheilitis [Unknown]
  - Gastrointestinal injury [Unknown]
  - Colitis [Unknown]
  - Exfoliative rash [Unknown]

NARRATIVE: CASE EVENT DATE: 1997
